FAERS Safety Report 10201160 (Version 2)
Quarter: 2014Q2

REPORT INFORMATION
  Report Type: Spontaneous
  Country: US (occurrence: US)
  Receive Date: 20140528
  Receipt Date: 20140528
  Transmission Date: 20141212
  Serious: No
  Sender: FDA-Public Use
  Company Number: US-MYLANLABS-2014S1003935

PATIENT
  Age: 82 Year
  Sex: Female
  Weight: 81.65 kg

DRUGS (6)
  1. MONTELUKAST SODIUM TABLETS [Suspect]
     Indication: ASTHMA
     Route: 048
     Dates: start: 2014, end: 20140213
  2. MONTELUKAST SODIUM TABLETS [Suspect]
     Indication: GASTROOESOPHAGEAL REFLUX DISEASE
     Route: 048
     Dates: start: 2014, end: 20140213
  3. FLUTICANOSE [Concomitant]
     Route: 045
  4. NEXIUM [Concomitant]
  5. ALLEGRA [Concomitant]
  6. LEVOTHYROXINE [Concomitant]
     Indication: HYPOTHYROIDISM
     Route: 048

REACTIONS (3)
  - Vomiting [Recovering/Resolving]
  - Nausea [Recovering/Resolving]
  - Dizziness [Recovered/Resolved]
